FAERS Safety Report 17307948 (Version 2)
Quarter: 2020Q2

REPORT INFORMATION
  Report Type: Spontaneous
  Country: US (occurrence: US)
  Receive Date: 20200123
  Receipt Date: 20200416
  Transmission Date: 20200713
  Serious: Yes (Death)
  Sender: FDA-Public Use
  Company Number: US-SA-2020SA018815

PATIENT
  Age: 55 Year
  Sex: Male

DRUGS (10)
  1. XARELTO [Concomitant]
     Active Substance: RIVAROXABAN
     Dosage: 15 MG, QD
  2. DUPIXENT [Suspect]
     Active Substance: DUPILUMAB
     Dosage: 300 MG, QOW
     Route: 058
     Dates: start: 2019, end: 20191204
  3. PERCOCET [Concomitant]
     Active Substance: ACETAMINOPHEN\OXYCODONE HYDROCHLORIDE
     Dosage: UNK UNK, PRN
  4. OXYGEN. [Concomitant]
     Active Substance: OXYGEN
     Dosage: 4L-6L, CONT
  5. DUPIXENT [Suspect]
     Active Substance: DUPILUMAB
     Indication: ASTHMA
     Dosage: 600 MG, 1X
     Route: 058
     Dates: start: 20191104, end: 20191104
  6. TRELEGY ELLIPTA [Concomitant]
     Active Substance: FLUTICASONE FUROATE\UMECLIDINIUM BROMIDE\VILANTEROL TRIFENATATE
     Dosage: UNK UNK, QD
  7. ASPIRIN [ACETYLSALICYLIC ACID] [Concomitant]
     Active Substance: ASPIRIN
     Dosage: 81 MG, QD
  8. ALBUTEROL [SALBUTAMOL] [Concomitant]
     Active Substance: ALBUTEROL
     Dosage: UNK UNK, PRN
  9. AZITHROMYCIN ANHYDROUS. [Concomitant]
     Active Substance: AZITHROMYCIN ANHYDROUS
     Dosage: 500 MG, QW
  10. CENTRUM SILVER [ASCORBIC ACID;BETACAROTENE;BIOTIN;CALCIUM;CHROMIUM;COL [Concomitant]
     Dosage: UNK UNK, QD

REACTIONS (2)
  - Chronic obstructive pulmonary disease [Fatal]
  - Asthma [Fatal]

NARRATIVE: CASE EVENT DATE: 20191211
